FAERS Safety Report 7584812-1 (Version None)
Quarter: 2011Q2

REPORT INFORMATION
  Report Type: 
  Country: None (occurrence: None)
  Receive Date: 20110630
  Receipt Date: 20110623
  Transmission Date: 20111010
  Serious: Yes (Hospitalization, Other)
  Sender: FDA-Public Use
  Company Number: PHHO2011KR10740

PATIENT
  Sex: Female
  Weight: 62 kg

DRUGS (2)
  1. CHOP [Concomitant]
     Indication: T-CELL LYMPHOMA
  2. AFINITOR [Suspect]
     Indication: T-CELL LYMPHOMA
     Dosage: 5 MG
     Route: 048
     Dates: start: 20110502

REACTIONS (2)
  - THROMBOCYTOPENIA [None]
  - FEBRILE NEUTROPENIA [None]
